FAERS Safety Report 9912243 (Version 1)
Quarter: 2014Q1

REPORT INFORMATION
  Report Type: Spontaneous
  Country: US (occurrence: US)
  Receive Date: 20140220
  Receipt Date: 20140220
  Transmission Date: 20141002
  Serious: Yes (Life-Threatening, Hospitalization)
  Sender: FDA-Public Use
  Company Number: US-SA-2013SA127042

PATIENT
  Age: 64 Year
  Sex: Male
  Weight: 65.31 kg

DRUGS (6)
  1. ZALTRAP [Suspect]
     Route: 065
  2. FLOMAX [Concomitant]
  3. MYCOSTATIN [Concomitant]
  4. COZAAR [Concomitant]
  5. XELODA [Concomitant]
     Dosage: DOSE AS DIRECTED BY PHYSICIAN
  6. PREDNISONE [Concomitant]

REACTIONS (2)
  - Disease progression [Unknown]
  - Psoriasis [Unknown]
